FAERS Safety Report 14412713 (Version 3)
Quarter: 2018Q1

REPORT INFORMATION
  Report Type: Spontaneous
  Country: US (occurrence: US)
  Receive Date: 20180119
  Receipt Date: 20180220
  Transmission Date: 20180509
  Serious: Yes (Other)
  Sender: FDA-Public Use
  Company Number: US-009507513-1801USA004372

PATIENT
  Age: 69 Year
  Sex: Female
  Weight: 67.3 kg

DRUGS (61)
  1. FOSAMAX [Suspect]
     Active Substance: ALENDRONATE SODIUM
     Indication: PAIN IN JAW
     Dosage: 70 MG, WEEKLY
     Route: 048
     Dates: start: 201201, end: 201309
  2. PREDNISONE. [Suspect]
     Active Substance: PREDNISONE
     Dosage: UNK
     Dates: start: 20131120
  3. XELJANZ [Concomitant]
     Active Substance: TOFACITINIB CITRATE
  4. NEXIUM [Concomitant]
     Active Substance: ESOMEPRAZOLE MAGNESIUM
  5. OMEGA-3 MARINE TRIGLYCERIDES [Concomitant]
     Active Substance: FISH OIL
  6. MOMETASONE FUROATE. [Concomitant]
     Active Substance: MOMETASONE FUROATE
  7. CRANBERRY. [Concomitant]
     Active Substance: CRANBERRY
  8. MISOPROSTOL. [Concomitant]
     Active Substance: MISOPROSTOL
  9. NEURONTIN [Concomitant]
     Active Substance: GABAPENTIN
  10. VESICARE [Concomitant]
     Active Substance: SOLIFENACIN SUCCINATE
     Dosage: UNK
  11. SYNVISC-ONE [Concomitant]
     Active Substance: HYALURONATE SODIUM
     Dosage: UNK
     Dates: start: 20120404
  12. TRAZODONE HYDROCHLORIDE. [Concomitant]
     Active Substance: TRAZODONE HYDROCHLORIDE
  13. CYANOCOBALAMIN. [Concomitant]
     Active Substance: CYANOCOBALAMIN
  14. SYNVISC [Concomitant]
     Active Substance: HYALURONATE SODIUM
     Dosage: UNK
     Dates: start: 20160203, end: 20160203
  15. ESTRACE [Concomitant]
     Active Substance: ESTRADIOL
  16. ZINC SULFATE [Concomitant]
     Active Substance: ZINC SULFATE\ZINC SULFATE ANHYDROUS
  17. TYLENOL EXTRA STRENGTH [Concomitant]
     Active Substance: ACETAMINOPHEN
  18. VITAMINS (UNSPECIFIED) [Concomitant]
     Active Substance: VITAMINS
  19. MVI (ASCORBIC ACID (+) ERGOCALCIFEROL (+) FOLIC ACID (+) PHYTONADIONE [Concomitant]
     Dosage: UNK
  20. PERCOCET [Concomitant]
     Active Substance: ACETAMINOPHEN\OXYCODONE HYDROCHLORIDE
     Dosage: UNK
  21. URSODIOL. [Suspect]
     Active Substance: URSODIOL
     Indication: WEIGHT DECREASED
     Dosage: 1500 MG, UNK
     Route: 048
  22. NASONEX [Concomitant]
     Active Substance: MOMETASONE FUROATE
  23. DONECEPT [Concomitant]
     Active Substance: DONEPEZIL HYDROCHLORIDE
  24. PLAQUENIL [Concomitant]
     Active Substance: HYDROXYCHLOROQUINE SULFATE
     Dosage: UNK
     Dates: start: 2009
  25. PLAQUENIL [Concomitant]
     Active Substance: HYDROXYCHLOROQUINE SULFATE
     Dosage: UNK
     Dates: start: 20120314
  26. CALCIUM (UNSPECIFIED) [Concomitant]
     Active Substance: CALCIUM
  27. REFRESH LIQUIGEL [Concomitant]
     Active Substance: CARBOXYMETHYLCELLULOSE SODIUM
  28. MICONAZOLE NITRATE. [Concomitant]
     Active Substance: MICONAZOLE NITRATE
  29. PRINIVIL [Concomitant]
     Active Substance: LISINOPRIL
  30. PLAQUENIL [Concomitant]
     Active Substance: HYDROXYCHLOROQUINE SULFATE
     Indication: RHEUMATOID ARTHRITIS
     Dosage: UNK
     Dates: start: 2008
  31. WELCHOL [Concomitant]
     Active Substance: COLESEVELAM HYDROCHLORIDE
  32. ASPIRIN. [Concomitant]
     Active Substance: ASPIRIN
  33. BENICAR HCT [Concomitant]
     Active Substance: HYDROCHLOROTHIAZIDE\OLMESARTAN MEDOXOMIL
  34. ARAVA [Concomitant]
     Active Substance: LEFLUNOMIDE
  35. SYNVISC [Concomitant]
     Active Substance: HYALURONATE SODIUM
     Dosage: UNK
     Dates: start: 201608, end: 201608
  36. POLYETHYLENE GLYCOL 3350. [Concomitant]
     Active Substance: POLYETHYLENE GLYCOL 3350
  37. COMPAZINE (PROCHLORPERAZINE MALEATE) [Concomitant]
     Dosage: UNK
  38. CALCIUM (UNSPECIFIED) (+) VITAMIN D (UNSPECIFIED) [Concomitant]
     Active Substance: CALCIUM CARBONATE\VITAMIN D
  39. URSODIOL. [Suspect]
     Active Substance: URSODIOL
     Indication: RHEUMATOID ARTHRITIS
  40. CETIRIZINE HYDROCHLORIDE. [Concomitant]
     Active Substance: CETIRIZINE HYDROCHLORIDE
  41. ASPIR-81 [Concomitant]
     Active Substance: ASPIRIN
  42. VICOPROFEN [Concomitant]
     Active Substance: HYDROCODONE BITARTRATE\IBUPROFEN
  43. PREDNISONE. [Suspect]
     Active Substance: PREDNISONE
     Dosage: UNK
  44. ZYRTEC [Concomitant]
     Active Substance: CETIRIZINE HYDROCHLORIDE
  45. SKELAXIN [Concomitant]
     Active Substance: METAXALONE
  46. CYTOTEC [Concomitant]
     Active Substance: MISOPROSTOL
  47. ETODOLAC. [Concomitant]
     Active Substance: ETODOLAC
  48. COMPAZINE (PROCHLORPERAZINE MALEATE) [Concomitant]
     Dosage: UNK
  49. PRILOSEC [Concomitant]
     Active Substance: OMEPRAZOLE MAGNESIUM
  50. ARTHROTEC [Concomitant]
     Active Substance: DICLOFENAC SODIUM\MISOPROSTOL
     Dosage: UNK
  51. AZOR [Concomitant]
     Active Substance: AMLODIPINE BESYLATE\OLMESARTAN MEDOXOMIL
     Dosage: UNK
  52. CITRACAL [Concomitant]
     Active Substance: CALCIUM CITRATE
     Dosage: UNK
  53. CHONDROITIN (+) GLUCOSAMINE [Concomitant]
     Dosage: UNK
  54. FLEXERIL [Concomitant]
     Active Substance: CYCLOBENZAPRINE HYDROCHLORIDE
     Dosage: UNK
  55. PREDNISONE. [Suspect]
     Active Substance: PREDNISONE
     Dosage: UNK
     Dates: start: 2011, end: 2012
  56. HUMIRA [Concomitant]
     Active Substance: ADALIMUMAB
  57. SYNVISC [Concomitant]
     Active Substance: HYALURONATE SODIUM
     Dosage: UNK
     Dates: start: 20170822
  58. MILK OF MAGNESIA [Concomitant]
     Active Substance: MAGNESIUM HYDROXIDE
  59. ALPRAZOLAM. [Concomitant]
     Active Substance: ALPRAZOLAM
  60. TOPROL XL [Concomitant]
     Active Substance: METOPROLOL SUCCINATE
  61. LIDOCAINE. [Concomitant]
     Active Substance: LIDOCAINE
     Dosage: UNK

REACTIONS (27)
  - Pelvic fracture [Unknown]
  - Spinal column stenosis [Unknown]
  - Urinary tract infection [Unknown]
  - Insomnia [Unknown]
  - Epidural injection [Unknown]
  - Intervertebral disc protrusion [Unknown]
  - Alopecia [Unknown]
  - Therapeutic procedure [Unknown]
  - Hypoaesthesia [Unknown]
  - Pain in jaw [Recovered/Resolved]
  - Weight decreased [Unknown]
  - Pelvic pain [Unknown]
  - Increased appetite [Unknown]
  - Gait disturbance [Unknown]
  - Anxiety [Unknown]
  - Malaise [Unknown]
  - Peripheral nerve lesion [Unknown]
  - Feeling jittery [Unknown]
  - Pelvic fracture [Recovered/Resolved]
  - Intervertebral disc degeneration [Unknown]
  - Drug intolerance [Unknown]
  - Arthralgia [Unknown]
  - Carpal tunnel syndrome [Unknown]
  - Neuropathy peripheral [Unknown]
  - Arthritis [Unknown]
  - Trigger finger [Recovered/Resolved]
  - Sleep disorder [Unknown]

NARRATIVE: CASE EVENT DATE: 2011
